FAERS Safety Report 9272387 (Version 1)
Quarter: 2013Q2

REPORT INFORMATION
  Report Type: Spontaneous
  Country: US (occurrence: US)
  Receive Date: 20130506
  Receipt Date: 20130506
  Transmission Date: 20140414
  Serious: No
  Sender: FDA-Public Use
  Company Number: US-ASTRAZENECA-2012SE87530

PATIENT
  Sex: Female

DRUGS (6)
  1. PRILOSEC OTC [Suspect]
     Indication: PRODUCT USED FOR UNKNOWN INDICATION
     Route: 048
     Dates: start: 20121026, end: 20121029
  2. CHOLESTEROL- AND TRIGLYCERIDE REDUCERS [Concomitant]
  3. STOMACH RELAXER [Concomitant]
  4. BABY ASPIRIN [Concomitant]
  5. PROBIOTIC FEMINA [Concomitant]
  6. MULTIPLE VITAMINS [Concomitant]

REACTIONS (4)
  - Abdominal distension [Recovered/Resolved]
  - Irritable bowel syndrome [Recovered/Resolved]
  - Condition aggravated [Recovered/Resolved]
  - Abdominal pain upper [Recovered/Resolved]
